FAERS Safety Report 5056659-1 (Version None)
Quarter: 2006Q2

REPORT INFORMATION
  Report Type: 
  Country: None (occurrence: None)
  Receive Date: 20060616
  Receipt Date: 20060306
  Transmission Date: 20061013
  Serious: No
  Sender: FDA-Public Use
  Company Number: 219470

PATIENT
  Sex: Male

DRUGS (4)
  1. AVASTIN [Suspect]
     Indication: COLORECTAL CANCER METASTATIC
     Dates: start: 20040701, end: 20041201
  2. FLUOROURACIL [Suspect]
     Indication: COLON CANCER METASTATIC
     Dates: start: 20040701, end: 20041201
  3. LEUCOVORIN (LEUCOVORIN CALCIUM) [Suspect]
     Indication: COLON CANCER METASTATIC
     Dates: start: 20040701, end: 20041201
  4. ANTI HYPERTENSIVE MEDS (ANTIHYPERTENSIVE NOS) [Concomitant]

REACTIONS (2)
  - HYPERTENSION [None]
  - PERSONALITY CHANGE [None]
